FAERS Safety Report 4841778-2 (Version None)
Quarter: 2005Q4

REPORT INFORMATION
  Report Type: 
  Country: None (occurrence: None)
  Receive Date: 20051130
  Receipt Date: 20051117
  Transmission Date: 20060501
  Serious: Yes (Hospitalization)
  Sender: FDA-Public Use
  Company Number: US-ROCHE-425511

PATIENT
  Age: 49 Year
  Sex: Female

DRUGS (2)
  1. PEGASYS [Suspect]
     Dosage: PATIENT COMPLETED 24 WEEKS OF THERAPY
     Route: 065
     Dates: end: 20051117
  2. COPEGUS [Suspect]
     Dosage: PATIENT COMPLETED 24 WEEKS OF THERAPY
     Route: 065
     Dates: end: 20051117

REACTIONS (4)
  - DEHYDRATION [None]
  - FATIGUE [None]
  - SYNCOPE [None]
  - THROAT IRRITATION [None]
